FAERS Safety Report 9935518 (Version 1)
Quarter: 2014Q1

REPORT INFORMATION
  Report Type: Spontaneous
  Country: US (occurrence: US)
  Receive Date: 20140228
  Receipt Date: 20140228
  Transmission Date: 20141002
  Serious: Yes (Other)
  Sender: FDA-Public Use
  Company Number: US-PFIZER INC-2014056803

PATIENT
  Age: 54 Year
  Sex: Male
  Weight: 126.98 kg

DRUGS (3)
  1. LYRICA [Suspect]
     Indication: NEUROPATHY PERIPHERAL
     Dosage: UNK
     Dates: start: 2005, end: 2005
  2. OXYMORPHONE [Concomitant]
     Indication: PAIN
     Dosage: 5 MG, AS NEEDED
     Dates: start: 2005
  3. OXYCODONE [Concomitant]
     Indication: PAIN
     Dosage: 450 MG, DAILY
     Dates: start: 2005, end: 2011

REACTIONS (1)
  - Suicidal ideation [Recovered/Resolved]
